FAERS Safety Report 9236511 (Version 1)
Quarter: 2013Q2

REPORT INFORMATION
  Report Type: Spontaneous
  Country: US (occurrence: US)
  Receive Date: 20130417
  Receipt Date: 20130417
  Transmission Date: 20140414
  Serious: No
  Sender: FDA-Public Use
  Company Number: US-PFIZER INC-2013121280

PATIENT
  Age: 66 Year
  Sex: Female
  Weight: 73.47 kg

DRUGS (2)
  1. LYRICA [Suspect]
     Indication: PAIN
     Dosage: 100 MG (TAKING 2 CAPSULES OF 50MG), 2X/DAY
     Route: 048
     Dates: start: 20130407, end: 201304
  2. LYRICA [Suspect]
     Dosage: 100 MG, 4X/DAY
     Dates: start: 201304

REACTIONS (3)
  - Dizziness [Unknown]
  - Euphoric mood [Unknown]
  - Weight increased [Unknown]
